FAERS Safety Report 5362871-4 (Version None)
Quarter: 2007Q2

REPORT INFORMATION
  Report Type: 
  Country: None (occurrence: None)
  Receive Date: 20070615
  Receipt Date: 20070601
  Transmission Date: 20071010
  Serious: Yes (Death, Hospitalization)
  Sender: FDA-Public Use
  Company Number: A-US2005-10586

PATIENT
  Age: 32 Year
  Sex: Male
  Weight: 83 kg

DRUGS (5)
  1. TRACLEER [Suspect]
     Indication: PULMONARY HYPERTENSION
     Dosage: ORAL
     Route: 048
  2. VENTAVIS [Suspect]
     Indication: PULMONARY HYPERTENSION
     Dosage: 5 UG, 6 X/DAY, RESPIRATORY
     Route: 055
  3. LANOXIN [Concomitant]
  4. METOPROLOL TARTRATE [Concomitant]
  5. PANTOPRAZOLE SODIUM [Concomitant]

REACTIONS (1)
  - RENAL FAILURE [None]
